FAERS Safety Report 22995706 (Version 18)
Quarter: 2024Q3

REPORT INFORMATION
  Report Type: Report from Study
  Country: BR (occurrence: BR)
  Receive Date: 20230927
  Receipt Date: 20240927
  Transmission Date: 20241017
  Serious: Yes (Other)
  Sender: NOVARTIS
  Company Number: BR-002147023-NVSC2023BR189127

PATIENT
  Age: 55 Year
  Sex: Female

DRUGS (18)
  1. KISQALI [Suspect]
     Active Substance: RIBOCICLIB
     Indication: Breast cancer
     Dosage: 3 DOSAGE FORM, QD (3 TABLETS)
     Route: 048
     Dates: start: 202304
  2. KISQALI [Suspect]
     Active Substance: RIBOCICLIB
     Dosage: 3 DOSAGE FORM (3 DF, PILLS)
     Route: 048
     Dates: start: 20230818
  3. KISQALI [Suspect]
     Active Substance: RIBOCICLIB
     Dosage: 3 DOSAGE FORM
     Route: 048
  4. KISQALI [Suspect]
     Active Substance: RIBOCICLIB
     Dosage: 200 MG
     Route: 048
     Dates: start: 20231215
  5. KISQALI [Suspect]
     Active Substance: RIBOCICLIB
     Dosage: UNK, QD
     Route: 048
  6. KISQALI [Suspect]
     Active Substance: RIBOCICLIB
     Dosage: 2 DOSAGE FORM, QD (2 TABLETS PER DAY)
     Route: 048
  7. KISQALI [Suspect]
     Active Substance: RIBOCICLIB
     Dosage: 3 DOSAGE FORM (3 TABLETS)
     Route: 048
  8. KISQALI [Suspect]
     Active Substance: RIBOCICLIB
     Dosage: 2 DOSAGE FORM, QD (REDUCED TO 2 TABLETS)
     Route: 048
  9. KISQALI [Suspect]
     Active Substance: RIBOCICLIB
     Dosage: 2 DOSAGE FORM, QD (2 TABLETS PER DAY)
     Route: 048
  10. KISQALI [Suspect]
     Active Substance: RIBOCICLIB
     Dosage: 2 DOSAGE FORM, QD OTHER (2 TABLETS A DAY)
     Route: 048
  11. KISQALI [Suspect]
     Active Substance: RIBOCICLIB
     Dosage: UNK
     Route: 048
  12. KISQALI [Suspect]
     Active Substance: RIBOCICLIB
     Dosage: UNK
     Route: 048
  13. KISQALI [Suspect]
     Active Substance: RIBOCICLIB
     Dosage: UNK
     Route: 048
  14. ANASTROZOLE [Suspect]
     Active Substance: ANASTROZOLE
     Indication: Breast cancer
     Dosage: 2 DOSAGE FORM, QD (2 TABLETS PER DAY)
     Route: 065
  15. CALCIUM [Concomitant]
     Active Substance: CALCIUM
     Indication: Prophylaxis
     Dosage: UNK, Q3MO (IN VEIN) (THE LAST TIME SHE TOOK IT WAS IN OCT-2023
     Route: 042
     Dates: end: 202310
  16. DIPYRONE [Concomitant]
     Active Substance: DIPYRONE
     Indication: Product used for unknown indication
     Dosage: UNK
     Route: 065
  17. ONDANSETRON HYDROCHLORIDE [Concomitant]
     Active Substance: ONDANSETRON HYDROCHLORIDE
     Indication: Product used for unknown indication
     Dosage: UNK
     Route: 065
  18. SIMETHICONE (DIMETHICONE) [Concomitant]
     Active Substance: DIMETHICONE
     Indication: Product used for unknown indication
     Dosage: UNK
     Route: 065

REACTIONS (66)
  - Malignant neoplasm of thorax [Unknown]
  - Bone cancer [Unknown]
  - Second primary malignancy [Unknown]
  - Bone disorder [Unknown]
  - Decreased immune responsiveness [Recovered/Resolved]
  - Decreased immune responsiveness [Recovered/Resolved]
  - Influenza [Recovered/Resolved]
  - Throat irritation [Recovered/Resolved]
  - Rhinorrhoea [Recovered/Resolved]
  - Sinusitis [Recovered/Resolved]
  - Hypersensitivity [Recovered/Resolved]
  - Dysuria [Unknown]
  - Myopia [Unknown]
  - Liver disorder [Unknown]
  - Productive cough [Unknown]
  - Vomiting [Recovered/Resolved]
  - Abdominal pain [Unknown]
  - Urinary tract infection [Recovering/Resolving]
  - Nasopharyngitis [Not Recovered/Not Resolved]
  - Vomiting [Unknown]
  - Decreased appetite [Recovered/Resolved]
  - Malaise [Unknown]
  - Oral discomfort [Unknown]
  - Ageusia [Unknown]
  - Oral pain [Recovered/Resolved]
  - Drug intolerance [Unknown]
  - Asthenia [Recovered/Resolved]
  - Fatigue [Unknown]
  - Pain [Unknown]
  - Injury [Recovered/Resolved]
  - Nausea [Recovered/Resolved]
  - Feeling hot [Recovered/Resolved]
  - General physical health deterioration [Unknown]
  - Laziness [Unknown]
  - Sluggishness [Recovered/Resolved]
  - Cough [Not Recovered/Not Resolved]
  - Abdominal discomfort [Not Recovered/Not Resolved]
  - Fungal foot infection [Unknown]
  - Decreased immune responsiveness [Recovered/Resolved]
  - Decreased immune responsiveness [Unknown]
  - Decreased immune responsiveness [Recovered/Resolved]
  - Anxiety [Unknown]
  - Insomnia [Unknown]
  - Decreased appetite [Unknown]
  - Dry throat [Unknown]
  - Feeling of body temperature change [Unknown]
  - Eructation [Unknown]
  - Hyperhidrosis [Not Recovered/Not Resolved]
  - Abdominal distension [Unknown]
  - Memory impairment [Unknown]
  - Vitiligo [Unknown]
  - Skin depigmentation [Not Recovered/Not Resolved]
  - Rash macular [Unknown]
  - Hypersensitivity [Unknown]
  - Pruritus [Unknown]
  - Dry eye [Unknown]
  - Drug hypersensitivity [Unknown]
  - Dysarthria [Unknown]
  - Lacrimation increased [Unknown]
  - Weight increased [Unknown]
  - Sunburn [Unknown]
  - Decreased immune responsiveness [Unknown]
  - Influenza [Recovered/Resolved]
  - Eye pain [Recovered/Resolved]
  - Nasal congestion [Recovered/Resolved]
  - Wound [Recovered/Resolved]

NARRATIVE: CASE EVENT DATE: 20230801
